FAERS Safety Report 15532616 (Version 3)
Quarter: 2019Q1

REPORT INFORMATION
  Report Type: Spontaneous
  Country: US (occurrence: US)
  Receive Date: 20181019
  Receipt Date: 20190102
  Transmission Date: 20190417
  Serious: Yes (Other)
  Sender: FDA-Public Use
  Company Number: US-PFIZER INC-2018422654

PATIENT
  Age: 84 Year
  Sex: Male
  Weight: 84 kg

DRUGS (4)
  1. ATORVASTATIN CALCIUM. [Suspect]
     Active Substance: ATORVASTATIN CALCIUM
     Dosage: 40 MG, 1X/DAY
     Route: 048
     Dates: start: 201802, end: 2018
  2. ELIQUIS [Suspect]
     Active Substance: APIXABAN
     Indication: CEREBROVASCULAR ACCIDENT PROPHYLAXIS
     Dosage: 5 MG, 2X/DAY
     Route: 048
     Dates: start: 20180808, end: 201809
  3. FLONASE [MOMETASONE FUROATE] [Concomitant]
     Active Substance: MOMETASONE FUROATE
     Dosage: UNK, 1X/DAY
     Route: 065
  4. MULTIVITAMIN ACTIVE MAN [Concomitant]
     Dosage: UNK

REACTIONS (2)
  - Muscular weakness [Unknown]
  - Vein rupture [Recovered/Resolved]

NARRATIVE: CASE EVENT DATE: 2018
